FAERS Safety Report 13097096 (Version 1)
Quarter: 2017Q1

REPORT INFORMATION
  Report Type: Spontaneous
  Country: US (occurrence: US)
  Receive Date: 20170109
  Receipt Date: 20170109
  Transmission Date: 20170428
  Serious: Yes (Death, Congenital Anomaly)
  Sender: FDA-Public Use
  Company Number: None

PATIENT
  Age: 65 Year
  Sex: Male

DRUGS (1)
  1. STIVARGA [Suspect]
     Active Substance: REGORAFENIB
     Indication: COLON CANCER
     Dosage: 160MG (4 TABLETS) DAILY ORAL
     Route: 048
     Dates: start: 20161020, end: 20161108

REACTIONS (1)
  - Death [None]

NARRATIVE: CASE EVENT DATE: 20161108
